FAERS Safety Report 7471822-8 (Version None)
Quarter: 2011Q2

REPORT INFORMATION
  Report Type: 
  Country: None (occurrence: None)
  Receive Date: 20110511
  Receipt Date: 20100513
  Transmission Date: 20111010
  Serious: No
  Sender: FDA-Public Use
  Company Number: A0861072A

PATIENT
  Age: 56 Year
  Sex: Female

DRUGS (1)
  1. TYKERB [Suspect]
     Dosage: 1000MG PER DAY
     Route: 048
     Dates: start: 20100503

REACTIONS (8)
  - ALOPECIA [None]
  - PAIN [None]
  - HEADACHE [None]
  - FATIGUE [None]
  - DYSPEPSIA [None]
  - EPISTAXIS [None]
  - DIARRHOEA [None]
  - NASAL DRYNESS [None]
